FAERS Safety Report 23167390 (Version 1)
Quarter: 2023Q4

REPORT INFORMATION
  Report Type: Spontaneous
  Country: US (occurrence: US)
  Receive Date: 20231109
  Receipt Date: 20231109
  Transmission Date: 20240109
  Serious: No
  Sender: FDA-Public Use
  Company Number: US-002147023-NVSC2023US157103

PATIENT
  Sex: Male

DRUGS (5)
  1. ENTRESTO [Suspect]
     Active Substance: SACUBITRIL\VALSARTAN
     Dosage: UNK, BID (49/51 MG QPM)
     Route: 065
     Dates: start: 202306
  2. ENTRESTO [Suspect]
     Active Substance: SACUBITRIL\VALSARTAN
     Dosage: UNK, BID (24/26 MG Q AM)
     Route: 065
     Dates: start: 202306
  3. ENTRESTO [Suspect]
     Active Substance: SACUBITRIL\VALSARTAN
     Indication: Product used for unknown indication
     Dosage: 1 DOSAGE FORM, BID
     Route: 065
     Dates: start: 202306
  4. LISINOPRIL [Suspect]
     Active Substance: LISINOPRIL
     Indication: Product used for unknown indication
     Dosage: UNK
     Route: 065
  5. LOSARTAN [Suspect]
     Active Substance: LOSARTAN
     Indication: Product used for unknown indication
     Dosage: UNK
     Route: 065

REACTIONS (7)
  - Contraindicated product administered [Unknown]
  - Cough [Not Recovered/Not Resolved]
  - Decreased activity [Unknown]
  - Intervertebral disc protrusion [Unknown]
  - Pain [Unknown]
  - Paraesthesia [Unknown]
  - Nerve compression [Not Recovered/Not Resolved]
